FAERS Safety Report 10639424 (Version 2)
Quarter: 2014Q4

REPORT INFORMATION
  Report Type: Spontaneous
  Country: AU (occurrence: AU)
  Receive Date: 20141208
  Receipt Date: 20141208
  Transmission Date: 20150529
  Serious: Yes (Other)
  Sender: FDA-Public Use
  Company Number: AU-JNJFOC-20141204722

PATIENT
  Age: 50 Year
  Sex: Female

DRUGS (4)
  1. HERBAL DIURETICS [Suspect]
     Active Substance: HERBALS
     Indication: DIURETIC THERAPY
     Dosage: OCCASIONALLY.
     Route: 065
  2. PARACETAMOL [Suspect]
     Active Substance: ACETAMINOPHEN
     Indication: HEADACHE
     Route: 065
  3. IBUPROFEN. [Suspect]
     Active Substance: IBUPROFEN
     Indication: HEADACHE
     Route: 065
  4. PARACETAMOL [Suspect]
     Active Substance: ACETAMINOPHEN
     Route: 065

REACTIONS (1)
  - Nicotinic acid deficiency [Recovering/Resolving]
